FAERS Safety Report 15560259 (Version 2)
Quarter: 2018Q4

REPORT INFORMATION
  Report Type: Report from Study
  Country: GB (occurrence: GB)
  Receive Date: 20181029
  Receipt Date: 20181031
  Transmission Date: 20190205
  Serious: Yes (Other)
  Sender: FDA-Public Use
  Company Number: PHHY2018GB141072

PATIENT
  Sex: Female

DRUGS (1)
  1. COSENTYX [Suspect]
     Active Substance: SECUKINUMAB
     Indication: PSORIATIC ARTHROPATHY
     Dosage: 150 MG, QMO (MONTHLY)
     Route: 058
     Dates: start: 201805

REACTIONS (4)
  - Tonsillitis [Unknown]
  - Lower respiratory tract infection [Unknown]
  - Ill-defined disorder [Unknown]
  - Urinary tract infection [Unknown]
